FAERS Safety Report 4471891-3 (Version None)
Quarter: 2004Q4

REPORT INFORMATION
  Report Type: 
  Country: None (occurrence: None)
  Receive Date: 20041006
  Receipt Date: 20040921
  Transmission Date: 20050328
  Serious: Yes (Other)
  Sender: FDA-Public Use
  Company Number: S04-USA-06321-01

PATIENT

DRUGS (1)
  1. NAMENDA [Suspect]
     Dosage: 5 MG QD PO
     Route: 048
     Dates: start: 20040824

REACTIONS (1)
  - STEVENS-JOHNSON SYNDROME [None]
